FAERS Safety Report 8532807-3 (Version None)
Quarter: 2012Q3

REPORT INFORMATION
  Report Type: 
  Country: None (occurrence: None)
  Receive Date: 20120724
  Receipt Date: 20120720
  Transmission Date: 20120928
  Serious: Yes (Hospitalization, Disabling)
  Sender: FDA-Public Use
  Company Number: PHHY2012CN062698

PATIENT
  Age: 30 Year
  Sex: Male

DRUGS (1)
  1. SEBIVO [Suspect]
     Indication: HEPATITIS B
     Dosage: 600 MG, QD
     Route: 048
     Dates: start: 20110601, end: 20120601

REACTIONS (11)
  - MUSCULAR WEAKNESS [None]
  - ABDOMINAL PAIN [None]
  - BLOOD PRESSURE DECREASED [None]
  - MYOGLOBIN BLOOD INCREASED [None]
  - FALL [None]
  - NAUSEA [None]
  - SHOCK [None]
  - DYSPNOEA [None]
  - RHABDOMYOLYSIS [None]
  - BLOOD LACTIC ACID INCREASED [None]
  - BLOOD CREATINE PHOSPHOKINASE INCREASED [None]
